FAERS Safety Report 12595269 (Version 1)
Quarter: 2016Q3

REPORT INFORMATION
  Report Type: Report from Study
  Country: JP (occurrence: JP)
  Receive Date: 20160727
  Receipt Date: 20160727
  Transmission Date: 20161109
  Serious: Yes (Other)
  Sender: FDA-Public Use
  Company Number: JP-AMGEN-JPNNI2016096689

PATIENT
  Age: 43 Year
  Sex: Female
  Weight: 60 kg

DRUGS (15)
  1. PEGFILGRASTIM [Suspect]
     Active Substance: PEGFILGRASTIM
     Indication: COLONY STIMULATING FACTOR PROPHYLAXIS
     Dosage: 3.6 MG, UNK
     Route: 058
     Dates: start: 20160220, end: 20160220
  2. PEGFILGRASTIM [Suspect]
     Active Substance: PEGFILGRASTIM
     Dosage: 3.6 MG, UNK
     Route: 058
     Dates: start: 20160402, end: 20160402
  3. DOCETAXEL. [Suspect]
     Active Substance: DOCETAXEL
     Dosage: 70 MG/M2, UNK
     Route: 041
     Dates: start: 20160422
  4. CYCLOPHOSPHAMIDE MONOHYDRATE [Suspect]
     Active Substance: CYCLOPHOSPHAMIDE
     Dosage: 600 MG/M2, UNK
     Route: 041
     Dates: start: 20160311, end: 20160311
  5. DOCETAXEL. [Suspect]
     Active Substance: DOCETAXEL
     Dosage: 70 MG/M2, UNK
     Route: 041
     Dates: start: 20160401, end: 20160401
  6. MAGMITT [Concomitant]
     Active Substance: MAGNESIUM OXIDE
     Indication: CONSTIPATION
     Dosage: UNK
     Route: 048
  7. SENNOSIDE                          /00571901/ [Concomitant]
     Active Substance: SENNOSIDES A AND B
     Indication: CONSTIPATION
     Dosage: UNK
     Route: 048
  8. PEGFILGRASTIM [Suspect]
     Active Substance: PEGFILGRASTIM
     Dosage: 3.6 MG, UNK
     Route: 058
     Dates: start: 20160312, end: 20160312
  9. PEGFILGRASTIM [Suspect]
     Active Substance: PEGFILGRASTIM
     Dosage: 3.6 MG, UNK
     Route: 058
     Dates: start: 20160423
  10. CYCLOPHOSPHAMIDE MONOHYDRATE [Suspect]
     Active Substance: CYCLOPHOSPHAMIDE
     Indication: BREAST CANCER
     Dosage: 600 MG/M2, UNK
     Route: 041
     Dates: start: 20160219, end: 20160219
  11. CYCLOPHOSPHAMIDE MONOHYDRATE [Suspect]
     Active Substance: CYCLOPHOSPHAMIDE
     Dosage: 600 MG/M2, UNK
     Route: 041
     Dates: start: 20160401, end: 20160401
  12. DOCETAXEL. [Suspect]
     Active Substance: DOCETAXEL
     Dosage: 70 MG/M2, UNK
     Route: 041
     Dates: start: 20160311, end: 20160312
  13. CYCLOPHOSPHAMIDE MONOHYDRATE [Suspect]
     Active Substance: CYCLOPHOSPHAMIDE
     Dosage: 600 MG/M2, UNK
     Route: 041
     Dates: start: 20160422
  14. DOCETAXEL. [Suspect]
     Active Substance: DOCETAXEL
     Indication: BREAST CANCER
     Dosage: 70 MG/M2, UNK
     Route: 041
     Dates: start: 20160219, end: 20160219
  15. MERCAZOLE [Concomitant]
     Active Substance: CARBIMAZOLE
     Indication: HYPERTHYROIDISM
     Dosage: UNK
     Route: 048

REACTIONS (3)
  - Urticaria [Recovering/Resolving]
  - Chemotherapy [Unknown]
  - Off label use [Unknown]

NARRATIVE: CASE EVENT DATE: 20160312
